FAERS Safety Report 22186205 (Version 1)
Quarter: 2023Q2

REPORT INFORMATION
  Report Type: Spontaneous
  Country: US (occurrence: None)
  Receive Date: 20230406
  Receipt Date: 20230406
  Transmission Date: 20230722
  Serious: Yes (Other)
  Sender: FDA-Public Use
  Company Number: None

PATIENT
  Age: 26 Year
  Sex: Female
  Weight: 99.34 kg

DRUGS (1)
  1. MOXIFLOXACIN [Suspect]
     Active Substance: MOXIFLOXACIN
     Indication: Mycoplasma infection
     Dosage: FREQUENCY : DAILY;?
     Route: 048
     Dates: start: 20230329, end: 20230330

REACTIONS (10)
  - Neuropathy peripheral [None]
  - Autoscopy [None]
  - Palpitations [None]
  - Insomnia [None]
  - Pain [None]
  - Pain in extremity [None]
  - Muscle spasms [None]
  - Muscle tightness [None]
  - Abdominal pain upper [None]
  - Decreased appetite [None]

NARRATIVE: CASE EVENT DATE: 20230329
